FAERS Safety Report 4541145-5 (Version None)
Quarter: 2004Q4

REPORT INFORMATION
  Report Type: 
  Country: None (occurrence: None)
  Receive Date: 20041227
  Receipt Date: 20041129
  Transmission Date: 20050328
  Serious: Yes (Death)
  Sender: FDA-Public Use
  Company Number: 9377

PATIENT
  Sex: Male

DRUGS (2)
  1. LEUCOVORIN [Suspect]
     Indication: METASTASES TO LIVER
     Dosage: 20 MG/M2
  2. FLUOROURACIL [Suspect]
     Indication: METASTASES TO LIVER
     Dosage: 425 MG/M2

REACTIONS (1)
  - NEUTROPENIC SEPSIS [None]
